FAERS Safety Report 19431935 (Version 1)
Quarter: 2021Q2

REPORT INFORMATION
  Report Type: Spontaneous
  Country: GB (occurrence: GB)
  Receive Date: 20210618
  Receipt Date: 20210618
  Transmission Date: 20210717
  Serious: Yes (Hospitalization)
  Sender: FDA-Public Use
  Company Number: GB-NOVOPROD-820923

PATIENT
  Age: 81 Year
  Sex: Male

DRUGS (1)
  1. NOVOMIX 30 [Suspect]
     Active Substance: INSULIN ASPART
     Indication: TYPE 2 DIABETES MELLITUS
     Dosage: 16 IU, BID (2 TIMES DAILY 16 UNITS)
     Route: 065
     Dates: start: 2010, end: 202105

REACTIONS (1)
  - COVID-19 [Recovered/Resolved]

NARRATIVE: CASE EVENT DATE: 202104
